FAERS Safety Report 24976788 (Version 1)
Quarter: 2025Q1

REPORT INFORMATION
  Report Type: Spontaneous
  Country: US (occurrence: US)
  Receive Date: 20250217
  Receipt Date: 20250217
  Transmission Date: 20250409
  Serious: No
  Sender: BRISTOL-MYERS SQUIBB COMPANY
  Company Number: US-BRISTOL-MYERS SQUIBB COMPANY-2025-017773

PATIENT
  Age: 85 Year
  Sex: Male
  Weight: 69.85 kg

DRUGS (2)
  1. ELIQUIS [Suspect]
     Active Substance: APIXABAN
     Indication: Air embolism
     Route: 048
  2. UNSPECIFIED INGREDIENT [Concomitant]
     Active Substance: UNSPECIFIED INGREDIENT
     Indication: Product used for unknown indication

REACTIONS (5)
  - Product colour issue [Unknown]
  - Expired product administered [Unknown]
  - Off label use [Unknown]
  - Memory impairment [Unknown]
  - Visual impairment [Unknown]
